FAERS Safety Report 15238763 (Version 2)
Quarter: 2018Q4

REPORT INFORMATION
  Report Type: Spontaneous
  Country: ES (occurrence: ES)
  Receive Date: 20180803
  Receipt Date: 20181003
  Transmission Date: 20190204
  Serious: Yes (Hospitalization, Other)
  Sender: FDA-Public Use
  Company Number: ES-GLAXOSMITHKLINE-ES2018GSK135417

PATIENT
  Age: 15 Year
  Sex: Female

DRUGS (3)
  1. CRISOMET [Suspect]
     Active Substance: LAMOTRIGINE
     Indication: EPILEPSY
     Dosage: UNK
     Dates: start: 20180622, end: 20180703
  2. KEPPRA [Concomitant]
     Active Substance: LEVETIRACETAM
     Indication: EPILEPSY
     Dosage: UNK
     Dates: start: 201804
  3. CRISOMET [Suspect]
     Active Substance: LAMOTRIGINE
     Dosage: 25 MG, UNK
     Dates: start: 20180630, end: 20180703

REACTIONS (11)
  - Stevens-Johnson syndrome [Recovering/Resolving]
  - Ocular discomfort [Recovered/Resolved]
  - Rash pustular [Recovering/Resolving]
  - Dysphagia [Recovering/Resolving]
  - Erythema multiforme [Recovering/Resolving]
  - Erythema [Unknown]
  - Generalised erythema [Recovering/Resolving]
  - Pruritus [Recovering/Resolving]
  - Condition aggravated [Unknown]
  - Skin exfoliation [Recovering/Resolving]
  - Enanthema [Recovered/Resolved]

NARRATIVE: CASE EVENT DATE: 201807
